FAERS Safety Report 9443231 (Version 1)
Quarter: 2013Q3

REPORT INFORMATION
  Report Type: Spontaneous
  Country: US (occurrence: US)
  Receive Date: 20130806
  Receipt Date: 20130806
  Transmission Date: 20140515
  Serious: Yes (Death, Hospitalization)
  Sender: FDA-Public Use
  Company Number: US-GLAXOSMITHKLINE-A0867515A

PATIENT
  Sex: Male
  Weight: 57.3 kg

DRUGS (7)
  1. AVANDIA [Suspect]
     Indication: DIABETES MELLITUS
  2. GLYBURIDE [Concomitant]
  3. PRANDIN [Concomitant]
  4. LIPITOR [Concomitant]
  5. EPOGEN [Concomitant]
  6. COMBIVENT [Concomitant]
  7. ACIPHEX [Concomitant]

REACTIONS (6)
  - Multi-organ failure [Fatal]
  - Sepsis [Unknown]
  - Intestinal ischaemia [Unknown]
  - Renal failure chronic [Unknown]
  - Chronic obstructive pulmonary disease [Unknown]
  - Respiratory failure [Unknown]
